FAERS Safety Report 9943465 (Version 1)
Quarter: 2014Q1

REPORT INFORMATION
  Report Type: Report from Study
  Country: CO (occurrence: CO)
  Receive Date: 20140303
  Receipt Date: 20140303
  Transmission Date: 20141002
  Serious: Yes (Death)
  Sender: FDA-Public Use
  Company Number: PHHY2014CO025998

PATIENT
  Age: 76 Year
  Sex: 0

DRUGS (1)
  1. EXJADE [Suspect]
     Indication: IRON OVERLOAD
     Dosage: 1 DF, BID
     Route: 048
     Dates: start: 20130614, end: 20130820

REACTIONS (1)
  - Cardio-respiratory arrest [Fatal]
